FAERS Safety Report 7598367-9 (Version None)
Quarter: 2011Q3

REPORT INFORMATION
  Report Type: 
  Country: None (occurrence: None)
  Receive Date: 20110708
  Receipt Date: 20110701
  Transmission Date: 20111222
  Serious: Yes (Hospitalization)
  Sender: FDA-Public Use
  Company Number: PHHO2011DE11264

PATIENT
  Sex: Male
  Weight: 114 kg

DRUGS (8)
  1. BETA-TABLINEN [Concomitant]
     Indication: HYPERTENSION
  2. ENOXAPARIN SODIUM [Concomitant]
     Indication: VENOUS THROMBOSIS
  3. PANTOPRAZOLE [Concomitant]
  4. IBUPROFEN [Concomitant]
     Indication: PAIN
  5. AFINITOR [Suspect]
     Indication: TRANSITIONAL CELL CARCINOMA
     Dosage: 5 MG, BID
     Route: 048
     Dates: start: 20110418
  6. ALLOPURINOL [Concomitant]
  7. RAMIPRIL [Concomitant]
     Indication: HYPERTENSION
  8. PACLITAXEL [Suspect]
     Indication: TRANSITIONAL CELL CARCINOMA
     Dosage: 175 MG, UNK
     Route: 042
     Dates: start: 20110418, end: 20110418

REACTIONS (1)
  - GENERAL PHYSICAL HEALTH DETERIORATION [None]
